FAERS Safety Report 6864149-6 (Version None)
Quarter: 2010Q3

REPORT INFORMATION
  Report Type: 
  Country: None (occurrence: None)
  Receive Date: 20100721
  Receipt Date: 20080320
  Transmission Date: 20110219
  Serious: No
  Sender: FDA-Public Use
  Company Number: US-PFIZER INC-2008026858

PATIENT
  Sex: Female
  Weight: 63.6 kg

DRUGS (9)
  1. CHANTIX [Suspect]
     Indication: SMOKING CESSATION THERAPY
     Dates: start: 20080213
  2. PROMETRIUM [Concomitant]
  3. VIVELLE [Concomitant]
  4. TOPROL-XL [Concomitant]
  5. ZESTRIL [Concomitant]
  6. DIGITEK [Concomitant]
  7. LEXAPRO [Concomitant]
  8. ZOCOR [Concomitant]
  9. GEMFIBROZIL [Concomitant]

REACTIONS (1)
  - TINNITUS [None]
